FAERS Safety Report 8962351 (Version 1)
Quarter: 2012Q4

REPORT INFORMATION
  Report Type: Spontaneous
  Country: US (occurrence: None)
  Receive Date: 20121211
  Receipt Date: 20121211
  Transmission Date: 20130627
  Serious: Yes (Other)
  Sender: FDA-Public Use
  Company Number: None

PATIENT
  Sex: Female
  Weight: 86.18 kg

DRUGS (1)
  1. HYDROXYCHLOR [Suspect]
     Indication: VASCULITIS
     Dosage: 200 MG  2 TABLETS/DAILY  MOUTH
     Route: 048
     Dates: start: 2009, end: 2012

REACTIONS (1)
  - Ocular discomfort [None]
